FAERS Safety Report 9478108 (Version 1)
Quarter: 2013Q3

REPORT INFORMATION
  Report Type: Spontaneous
  Country: US (occurrence: US)
  Receive Date: 20130827
  Receipt Date: 20130827
  Transmission Date: 20140515
  Serious: Yes (Hospitalization)
  Sender: FDA-Public Use
  Company Number: US-BAYER-2013-103193

PATIENT
  Age: 53 Year
  Sex: Female
  Weight: 92.99 kg

DRUGS (5)
  1. YAZ [Suspect]
  2. SYNTHROID [Concomitant]
     Dosage: 0.05 MG, DAILY
     Route: 048
  3. TEMAZEPAM [Concomitant]
     Dosage: 15 MG, HS
  4. SIMVASTATIN [Concomitant]
  5. ZOCOR [Concomitant]

REACTIONS (2)
  - Cerebrovascular accident [None]
  - Cerebral infarction [None]
